FAERS Safety Report 7214792-X (Version None)
Quarter: 2010Q4

REPORT INFORMATION
  Report Type: 
  Country: None (occurrence: None)
  Receive Date: 20101230
  Receipt Date: 20101222
  Transmission Date: 20110411
  Serious: Yes (Other)
  Sender: FDA-Public Use
  Company Number: 2010SP066200

PATIENT
  Sex: Male

DRUGS (2)
  1. REMERON [Suspect]
     Indication: PRODUCT USED FOR UNKNOWN INDICATION
     Dosage: 45 MG;QD;PO
     Route: 048
     Dates: start: 20101201
  2. TOLEDOMIN [Concomitant]

REACTIONS (7)
  - HEADACHE [None]
  - IMMOBILE [None]
  - MUSCLE SPASMS [None]
  - MUSCULOSKELETAL STIFFNESS [None]
  - NIGHT SWEATS [None]
  - PAIN IN EXTREMITY [None]
  - TREMOR [None]
